FAERS Safety Report 5933337-5 (Version None)
Quarter: 2008Q4

REPORT INFORMATION
  Report Type: 
  Country: None (occurrence: None)
  Receive Date: 20081028
  Receipt Date: 20081016
  Transmission Date: 20090506
  Serious: Yes (Other)
  Sender: FDA-Public Use
  Company Number: JP-PFIZER INC-2008088344

PATIENT
  Age: 6 Year
  Sex: Male

DRUGS (2)
  1. ZITHROMAX [Suspect]
     Indication: PNEUMONIA MYCOPLASMAL
     Dosage: DAILY DOSE:180MG
     Route: 048
     Dates: start: 20080930, end: 20081001
  2. TOMIRON [Concomitant]
     Dates: start: 20080929

REACTIONS (1)
  - BRONCHOSPASM [None]
